FAERS Safety Report 7914852-1 (Version None)
Quarter: 2011Q4

REPORT INFORMATION
  Report Type: 
  Country: None (occurrence: None)
  Receive Date: 20111115
  Receipt Date: 20111108
  Transmission Date: 20120403
  Serious: Yes (Death, Other)
  Sender: FDA-Public Use
  Company Number: MX-UCBSA-045049

PATIENT
  Age: 88 Year
  Sex: Female
  Weight: 49 kg

DRUGS (3)
  1. KEPPRA [Suspect]
     Indication: EPILEPSY
     Route: 048
     Dates: start: 20101202, end: 20111008
  2. KRIADEX [Concomitant]
     Indication: EPILEPSY
     Route: 048
     Dates: start: 20110801, end: 20111008
  3. OXYGEN [Concomitant]
     Indication: RESPIRATORY FAILURE
     Route: 048
     Dates: start: 20110701, end: 20111009

REACTIONS (3)
  - LUNG NEOPLASM MALIGNANT [None]
  - RESPIRATORY FAILURE [None]
  - CARDIO-RESPIRATORY ARREST [None]
